FAERS Safety Report 20026653 (Version 1)
Quarter: 2021Q4

REPORT INFORMATION
  Report Type: Spontaneous
  Country: US (occurrence: US)
  Receive Date: 20211102
  Receipt Date: 20211102
  Transmission Date: 20220304
  Serious: No
  Sender: FDA-Public Use
  Company Number: US-SEAGEN-2021SGN05257

PATIENT
  Sex: Female

DRUGS (3)
  1. TUKYSA [Suspect]
     Active Substance: TUCATINIB
     Indication: HER2 positive breast cancer
  2. HERCEPTIN [Concomitant]
     Active Substance: TRASTUZUMAB
  3. XELODA [Concomitant]
     Active Substance: CAPECITABINE

REACTIONS (1)
  - Disease progression [Not Recovered/Not Resolved]
